FAERS Safety Report 7791651-5 (Version None)
Quarter: 2011Q4

REPORT INFORMATION
  Report Type: 
  Country: None (occurrence: None)
  Receive Date: 20111003
  Receipt Date: 20110929
  Transmission Date: 20120403
  Serious: Yes (Death)
  Sender: FDA-Public Use
  Company Number: US-ASTRAZENECA-2011SE39454

PATIENT
  Age: 74 Year
  Sex: Male

DRUGS (19)
  1. RADIOTHERAPY [Suspect]
     Indication: PROSTATE CANCER
     Route: 065
  2. LASIX [Concomitant]
     Route: 065
  3. PHENAZOPYRIDINE HCL TAB [Concomitant]
     Route: 065
  4. MUCINEX [Concomitant]
     Route: 065
  5. ASPIRIN [Concomitant]
     Route: 065
  6. ALBUTEROL SULFATE [Concomitant]
     Route: 065
  7. FLONASE [Concomitant]
     Route: 045
  8. CASODEX [Suspect]
     Indication: PROSTATE CANCER
     Route: 048
     Dates: start: 20101227
  9. LISINOPRIL [Concomitant]
     Route: 065
  10. DAKIN [Concomitant]
     Route: 065
  11. LUPRON [Suspect]
     Indication: PROSTATE CANCER
     Route: 030
     Dates: start: 20101229
  12. COREG [Concomitant]
     Route: 065
  13. TAXOTERE [Suspect]
     Indication: PROSTATE CANCER
     Route: 042
  14. POTASSIUM CLORIDE [Concomitant]
     Route: 065
  15. LEXAPRO [Concomitant]
     Route: 065
  16. MULTAQ [Concomitant]
     Route: 065
  17. ZOFRAN [Concomitant]
     Route: 065
  18. ADVAIR DISKUS 100/50 [Concomitant]
     Route: 065
  19. FLOMAX [Concomitant]
     Route: 065

REACTIONS (1)
  - DEATH [None]
